FAERS Safety Report 6790919-9 (Version None)
Quarter: 2010Q2

REPORT INFORMATION
  Report Type: 
  Country: None (occurrence: None)
  Receive Date: 20100624
  Receipt Date: 20100603
  Transmission Date: 20101027
  Serious: Yes (Death, Hospitalization)
  Sender: FDA-Public Use
  Company Number: Z0003715A

PATIENT
  Sex: Female
  Weight: 50 kg

DRUGS (11)
  1. PAZOPANIB [Suspect]
     Dosage: 800MG PER DAY
     Route: 048
     Dates: start: 20100310, end: 20100322
  2. PREDNISOLONE [Concomitant]
  3. NEUROBION FORTE [Concomitant]
     Dosage: 1CAP UNKNOWN
     Route: 048
     Dates: start: 20100325
  4. CITALOPRAM HYDROBROMIDE [Concomitant]
     Indication: DEPRESSION
     Dosage: 10MG PER DAY
     Route: 048
     Dates: start: 20100325
  5. ARANESP [Concomitant]
     Dosage: 500MG EVERY 3 WEEKS
     Route: 058
     Dates: start: 20100325
  6. OXAZEPAM [Concomitant]
     Indication: DEPRESSION
     Dosage: 15MG PER DAY
     Route: 048
     Dates: start: 20100325
  7. FORLAX [Concomitant]
     Dosage: 10G PER DAY
     Route: 048
     Dates: start: 20100325
  8. NOVALGIN [Concomitant]
     Dosage: 500MG PER DAY
     Route: 048
     Dates: start: 20100325
  9. LISINOPRIL [Concomitant]
     Indication: HYPERTENSION
     Dosage: 10MG PER DAY
     Route: 048
     Dates: start: 20100325
  10. FOLSAN [Concomitant]
     Indication: DRUG USE FOR UNKNOWN INDICATION
     Dosage: 5MG PER DAY
     Route: 048
     Dates: start: 20100325
  11. PANTOPRAZOLE [Concomitant]
     Indication: GASTRIC ULCER
     Dosage: 40MG PER DAY
     Route: 048
     Dates: start: 20100325

REACTIONS (1)
  - REVERSIBLE POSTERIOR LEUKOENCEPHALOPATHY SYNDROME [None]
